FAERS Safety Report 13165898 (Version 1)
Quarter: 2017Q1

REPORT INFORMATION
  Report Type: Spontaneous
  Country: US (occurrence: US)
  Receive Date: 20170126
  Receipt Date: 20170126
  Transmission Date: 20170428
  Serious: Yes (Hospitalization)
  Sender: FDA-Public Use
  Company Number: None

PATIENT
  Age: 59 Year
  Sex: Male
  Weight: 96.7 kg

DRUGS (3)
  1. ISOSORBIDE MONONITRATE. [Suspect]
     Active Substance: ISOSORBIDE MONONITRATE
     Indication: CARDIOMYOPATHY
     Dosage: MG PO
     Route: 048
     Dates: start: 20161011
  2. ISOSORBIDE MONONITRATE. [Suspect]
     Active Substance: ISOSORBIDE MONONITRATE
     Indication: HYPERTENSION
     Dosage: MG PO
     Route: 048
     Dates: start: 20161011
  3. METOPROLOL. [Suspect]
     Active Substance: METOPROLOL
     Dosage: MG BID PO
     Route: 048
     Dates: start: 20161011

REACTIONS (3)
  - Dizziness [None]
  - Orthostatic intolerance [None]
  - Therapy change [None]

NARRATIVE: CASE EVENT DATE: 20161104
